FAERS Safety Report 9526919 (Version 4)
Quarter: 2013Q4

REPORT INFORMATION
  Report Type: Report from Study
  Country: MX (occurrence: MX)
  Receive Date: 20130916
  Receipt Date: 20131105
  Transmission Date: 20140711
  Serious: Yes (Death, Hospitalization)
  Sender: FDA-Public Use
  Company Number: MX-BRISTOL-MYERS SQUIBB COMPANY-19224229

PATIENT
  Age: 53 Year
  Sex: Male
  Weight: 63.4 kg

DRUGS (11)
  1. PACLITAXEL [Suspect]
     Indication: NON-SMALL CELL LUNG CANCER
     Dosage: DAY 1 OF EVERY 3 WEEK CYCLE
     Route: 042
     Dates: start: 20130816, end: 20130816
  2. CARBOPLATIN [Suspect]
     Indication: NON-SMALL CELL LUNG CANCER
     Dosage: DAY 1 OF EVERY 3 WEEK CYCLE
     Route: 042
     Dates: end: 20130816
  3. NECITUMUMAB [Suspect]
     Indication: NON-SMALL CELL LUNG CANCER
     Dosage: LIQUID;?DAYS 1 AND 8 OF EVERY 3 WEEK CYCLE
     Route: 042
     Dates: start: 20130816, end: 20130816
  4. CHLOR-TRIMETON [Concomitant]
     Dates: start: 20130816, end: 20130816
  5. RANITIDINE HCL [Concomitant]
     Dates: start: 20130816, end: 20130816
  6. ZOFRAN [Concomitant]
     Dosage: 1DF: 16 UNITS NOS
     Dates: start: 20130816, end: 20130816
  7. DEXAMETHASONE [Concomitant]
     Indication: PROPHYLAXIS
     Dates: start: 20130815, end: 20130816
  8. METFORMIN [Concomitant]
     Indication: DIABETES MELLITUS
     Dates: start: 1995
  9. GLIBENCLAMIDE [Concomitant]
     Indication: DIABETES MELLITUS
  10. AKATINOL [Concomitant]
     Indication: HEMIPARESIS
     Dates: start: 201301
  11. AMANTADINE [Concomitant]
     Indication: HEMIPARESIS
     Dates: start: 201301

REACTIONS (1)
  - Respiratory failure [Fatal]
